FAERS Safety Report 4638753-X (Version None)
Quarter: 2005Q2

REPORT INFORMATION
  Report Type: 
  Country: None (occurrence: None)
  Receive Date: 20050418
  Receipt Date: 20050418
  Transmission Date: 20051028
  Serious: Yes (Death)
  Sender: FDA-Public Use
  Company Number: None

PATIENT
  Age: 84 Year
  Sex: Male
  Weight: 81.1939 kg

DRUGS (1)
  1. HALDOL [Suspect]
     Indication: INSOMNIA
     Dosage: 3MG    EVERY 8 HOURS
     Dates: start: 20050329, end: 20050409

REACTIONS (14)
  - BALANCE DISORDER [None]
  - COMA [None]
  - CONDITION AGGRAVATED [None]
  - CONFUSIONAL STATE [None]
  - DYSPHAGIA [None]
  - FACIAL PALSY [None]
  - LETHARGY [None]
  - MENTAL IMPAIRMENT [None]
  - ORAL INTAKE REDUCED [None]
  - PNEUMONIA [None]
  - SPEECH DISORDER [None]
  - SWOLLEN TONGUE [None]
  - TONGUE DISORDER [None]
  - TONGUE ULCERATION [None]
